FAERS Safety Report 9247789 (Version 1)
Quarter: 2013Q1

REPORT INFORMATION
  Report Type: Spontaneous
  Country: US (occurrence: None)
  Receive Date: 20130305
  Receipt Date: 20130305
  Transmission Date: 20140127
  Serious: Yes (Other)
  Sender: FDA-Public Use
  Company Number: 163-21880-12093245

PATIENT
  Age: 64 Year
  Sex: Female

DRUGS (19)
  1. REVLIMID [Suspect]
     Dosage: 25MG, 14 IN 14 D, PO
     Route: 048
     Dates: start: 201208
  2. ASPIRIN (ACETYLSALICYLIC ACID) [Concomitant]
  3. VELCADE (BORTEZOMIB) (SOLUTION) [Concomitant]
  4. DEXAMETHASONE (DEXAMETHASONE) [Concomitant]
  5. ALPRAZOLAM (ALPRAZOLAM) [Concomitant]
  6. AMITRIPTYLINE HCL (AMITRIPTYLINE HYDROCHLORIDE) [Concomitant]
  7. ARMOUR THRYROID (THYROID) [Concomitant]
  8. COQ10 (UBIDECARENONE) [Concomitant]
  9. FEXOFENADINE HCL (FEXOFENADINE HYDROCHLORIDE) [Concomitant]
  10. MULTIVITAMINS (MULTIVITAMINS) TABLETS [Concomitant]
  11. OMEPRAZOLE (OMEPRAZOLE) [Concomitant]
  12. PROBIOITC (BIFIDOBACTERIUM LACTIS) [Concomitant]
  13. PROCHLORPERAZINE MALEATE (PROCHLORPERAZINE MALEATE) [Concomitant]
  14. RED YEAST RICE (MONASCUS PURPUREUS) [Concomitant]
  15. SULFAMETHOXAZOLE-TMP (BACTRIM0 (TABLETS) [Concomitant]
  16. TUMERIC (TUMERIC) (CAPSULES) [Concomitant]
  17. VALACYCLOVIR HCL (VALACICLOVIR HYDROCHLORIDE) [Concomitant]
  18. VITAMIN C (ASCORBIC ACID) (TABLETS) [Concomitant]
  19. ZOLPIDEM TARTRATE (ZOLPIDEM TARTRATE) [Concomitant]

REACTIONS (3)
  - Malaise [None]
  - Platelet count decreased [None]
  - Pyrexia [None]
